FAERS Safety Report 4553372-1 (Version None)
Quarter: 2005Q1

REPORT INFORMATION
  Report Type: 
  Country: None (occurrence: None)
  Receive Date: 20050112
  Receipt Date: 20041229
  Transmission Date: 20050727
  Serious: Yes (Death, Life-Threatening)
  Sender: FDA-Public Use
  Company Number: FR_041205516

PATIENT
  Age: 73 Year
  Sex: Female
  Weight: 41 kg

DRUGS (7)
  1. TOBRAMYCIN SULFATE [Suspect]
     Dates: start: 20041122
  2. TIBERAL (ORNIDAZOLE) [Concomitant]
  3. TRANXENE [Concomitant]
  4. AUGMENTIN [Concomitant]
  5. OMEPRAZOLE [Concomitant]
  6. LOVENOX [Concomitant]
  7. SOLU-MEDROL [Concomitant]

REACTIONS (5)
  - GENERAL PHYSICAL HEALTH DETERIORATION [None]
  - HYPERSENSITIVITY [None]
  - PANCYTOPENIA [None]
  - POST PROCEDURAL HAEMORRHAGE [None]
  - RASH SCARLATINIFORM [None]
